FAERS Safety Report 23768785 (Version 1)
Quarter: 2024Q2

REPORT INFORMATION
  Report Type: Spontaneous
  Country: US (occurrence: None)
  Receive Date: 20240420
  Receipt Date: 20240420
  Transmission Date: 20240715
  Serious: Yes (Hospitalization)
  Sender: FDA-Public Use
  Company Number: None

PATIENT
  Age: 37 Year
  Sex: Male
  Weight: 86 kg

DRUGS (1)
  1. PONATINIB HYDROCHLORIDE [Suspect]
     Active Substance: PONATINIB HYDROCHLORIDE
     Dates: start: 20231219, end: 20231229

REACTIONS (3)
  - Anaemia [None]
  - Lymphocyte count decreased [None]
  - Platelet count decreased [None]

NARRATIVE: CASE EVENT DATE: 20231219
